FAERS Safety Report 12555016 (Version 2)
Quarter: 2016Q3

REPORT INFORMATION
  Report Type: Report from Study
  Country: DE (occurrence: DE)
  Receive Date: 20160714
  Receipt Date: 20160907
  Transmission Date: 20161109
  Serious: Yes (Hospitalization)
  Sender: FDA-Public Use
  Company Number: DE-ROCHE-1793211

PATIENT
  Age: 51 Year
  Sex: Male
  Weight: 109 kg

DRUGS (10)
  1. INSULIN HUMAN [Concomitant]
     Active Substance: INSULIN HUMAN
     Dosage: ACCORDING TO SCHEME
     Route: 065
  2. ATOSIL (GERMANY) [Concomitant]
     Dosage: AS REQUIRED
     Route: 065
  3. RIBAVIRIN. [Suspect]
     Active Substance: RIBAVIRIN
     Indication: CHRONIC HEPATITIS C
     Dosage: DAYS
     Route: 048
     Dates: start: 20150102, end: 20150202
  4. SULTANOL [Concomitant]
     Active Substance: ALBUTEROL SULFATE
     Route: 055
  5. DICLOFENAC [Concomitant]
     Active Substance: DICLOFENAC
     Dosage: AS REQUIRED
     Route: 065
  6. QUETIAPIN [Concomitant]
     Active Substance: QUETIAPINE
     Route: 065
  7. ATROVENT [Concomitant]
     Active Substance: IPRATROPIUM BROMIDE
     Route: 055
  8. L-THYROXIN [Concomitant]
     Active Substance: LEVOTHYROXINE SODIUM
     Route: 065
  9. LANTUS [Concomitant]
     Active Substance: INSULIN GLARGINE
     Route: 065
  10. HARVONI [Suspect]
     Active Substance: LEDIPASVIR\SOFOSBUVIR
     Indication: CHRONIC HEPATITIS C
     Route: 048
     Dates: start: 20150102, end: 20150618

REACTIONS (8)
  - Pneumonia [Recovered/Resolved]
  - Insomnia [Unknown]
  - Restlessness [Unknown]
  - Cough [Unknown]
  - Back pain [Unknown]
  - Dyspnoea [Unknown]
  - Panic disorder [Recovered/Resolved]
  - Fatigue [Recovered/Resolved]
